FAERS Safety Report 19994523 (Version 1)
Quarter: 2021Q4

REPORT INFORMATION
  Report Type: Spontaneous
  Country: US (occurrence: US)
  Receive Date: 20211026
  Receipt Date: 20211026
  Transmission Date: 20220303
  Serious: Yes (Death)
  Sender: FDA-Public Use
  Company Number: US-CADILA HEALTHCARE LIMITED-US-ZYDUS-070727

PATIENT

DRUGS (1)
  1. BOSENTAN [Suspect]
     Active Substance: BOSENTAN
     Indication: Pulmonary arterial hypertension
     Dosage: 125 MILLIGRAM, BID
     Route: 048
     Dates: end: 20210913

REACTIONS (2)
  - Condition aggravated [Fatal]
  - Hospice care [Recovered/Resolved]

NARRATIVE: CASE EVENT DATE: 20210914
